FAERS Safety Report 12231673 (Version 3)
Quarter: 2016Q2

REPORT INFORMATION
  Report Type: Spontaneous
  Country: US (occurrence: US)
  Receive Date: 20160401
  Receipt Date: 20160621
  Transmission Date: 20160815
  Serious: Yes (Hospitalization, Other)
  Sender: FDA-Public Use
  Company Number: US-BAYER-2016-056743

PATIENT
  Age: 31 Year
  Sex: Female
  Weight: 79.37 kg

DRUGS (4)
  1. MIRENA [Suspect]
     Active Substance: LEVONORGESTREL
     Indication: CONTRACEPTION
     Dosage: 20 MCG/24HR, CONT
     Route: 015
     Dates: start: 20090108, end: 20150827
  2. PROVERA [Concomitant]
     Active Substance: MEDROXYPROGESTERONE ACETATE
     Dosage: 10 MG, QID
     Route: 048
  3. CIPROFLOXACIN. [Concomitant]
     Active Substance: CIPROFLOXACIN
     Dosage: 500 MG, BID
     Route: 048
  4. DESOGESTREL W/ETHINYLESTRADIOL [Concomitant]
     Active Substance: DESOGESTREL\ETHINYL ESTRADIOL

REACTIONS (15)
  - Depression [None]
  - Device difficult to use [None]
  - Anger [None]
  - Uterine perforation [None]
  - Anxiety [None]
  - Fear [None]
  - Genital haemorrhage [Not Recovered/Not Resolved]
  - Medical device site scar [None]
  - Frustration tolerance decreased [None]
  - Emotional distress [None]
  - Device issue [None]
  - Product use issue [None]
  - Psychiatric symptom [None]
  - Oophorectomy [None]
  - Pain [None]

NARRATIVE: CASE EVENT DATE: 201407
